FAERS Safety Report 14983634 (Version 2)
Quarter: 2018Q3

REPORT INFORMATION
  Report Type: Report from Study
  Country: US (occurrence: US)
  Receive Date: 20180607
  Receipt Date: 20180806
  Transmission Date: 20181010
  Serious: Yes (Other)
  Sender: FDA-Public Use
  Company Number: US-PFIZER INC-2018089918

PATIENT
  Age: 61 Year
  Sex: Male

DRUGS (6)
  1. SUTENT [Suspect]
     Active Substance: SUNITINIB MALATE
     Indication: RENAL CELL CARCINOMA
     Dosage: 50 MG, DAILY
     Route: 048
     Dates: start: 20180216, end: 20180301
  2. SUTENT [Suspect]
     Active Substance: SUNITINIB MALATE
     Dosage: 25 MG, DAILY
     Route: 048
     Dates: start: 20180308, end: 20180314
  3. SUTENT [Suspect]
     Active Substance: SUNITINIB MALATE
     Dosage: 25 MG, CYCLIC (DAILY? 14 ON, 7 OFF)
     Route: 048
     Dates: start: 20180531, end: 20180717
  4. SUTENT [Suspect]
     Active Substance: SUNITINIB MALATE
     Dosage: 37.5 MG, DAILY
     Route: 048
     Dates: start: 20180324, end: 20180329
  5. SUTENT [Suspect]
     Active Substance: SUNITINIB MALATE
     Dosage: 37.5 MG, DAILY
     Route: 048
     Dates: start: 2018, end: 2018
  6. SUTENT [Suspect]
     Active Substance: SUNITINIB MALATE
     Dosage: UNK
     Route: 048
     Dates: start: 20180402, end: 20180403

REACTIONS (25)
  - Dry mouth [Unknown]
  - Fatigue [Unknown]
  - Rash [Recovered/Resolved]
  - Weight decreased [Unknown]
  - Pyrexia [Recovered/Resolved]
  - Dysgeusia [Unknown]
  - Palmar-plantar erythrodysaesthesia syndrome [Unknown]
  - Dizziness [Unknown]
  - Pain in extremity [Unknown]
  - Neoplasm progression [Unknown]
  - Bone marrow failure [Unknown]
  - Back pain [Unknown]
  - Dyspnoea exertional [Unknown]
  - Hyponatraemia [Unknown]
  - Leukopenia [Unknown]
  - Diarrhoea [Unknown]
  - Hypertension [Unknown]
  - Decreased appetite [Unknown]
  - Anaemia [Unknown]
  - Visual impairment [Unknown]
  - Neuropathy peripheral [Unknown]
  - Nausea [Unknown]
  - Thyroid function test abnormal [Unknown]
  - Asthenia [Unknown]
  - Polydipsia [Unknown]

NARRATIVE: CASE EVENT DATE: 2018
